FAERS Safety Report 17445803 (Version 1)
Quarter: 2020Q1

REPORT INFORMATION
  Report Type: Spontaneous
  Country: DE (occurrence: DE)
  Receive Date: 20200221
  Receipt Date: 20200221
  Transmission Date: 20200409
  Serious: Yes (Other)
  Sender: FDA-Public Use
  Company Number: DE-MYLANLABS-2020M1018460

PATIENT
  Sex: Female

DRUGS (2)
  1. FOLINIC ACID [Concomitant]
     Active Substance: LEUCOVORIN
     Indication: BREAST CANCER
     Dosage: UNK (16 CYCLES)
     Route: 065
     Dates: start: 201808
  2. FLUOROURACIL. [Suspect]
     Active Substance: FLUOROURACIL
     Indication: BREAST CANCER
     Dosage: UNK (16 CYCLES)
     Route: 065
     Dates: start: 201808

REACTIONS (5)
  - Malignant neoplasm progression [Unknown]
  - Breast cancer [Unknown]
  - Hepatic lesion [Unknown]
  - Leukopenia [Unknown]
  - Platelet count decreased [Unknown]

NARRATIVE: CASE EVENT DATE: 201811
